FAERS Safety Report 9252208 (Version 2)
Quarter: 2013Q2

REPORT INFORMATION
  Report Type: Spontaneous
  Country: IT (occurrence: IT)
  Receive Date: 20130424
  Receipt Date: 20130502
  Transmission Date: 20140414
  Serious: Yes (Other)
  Sender: FDA-Public Use
  Company Number: IT-AMGEN-ITASP2013028570

PATIENT
  Age: 52 Year
  Sex: Female

DRUGS (5)
  1. ENBREL [Suspect]
     Indication: PSORIATIC ARTHROPATHY
     Dosage: 50 MG, WEEKLY
     Route: 058
     Dates: start: 20100810
  2. SULFASALAZINE [Concomitant]
     Dosage: 2 G, 1X/DAY
     Route: 048
  3. COLECALCIFEROL [Concomitant]
     Dosage: 25000 IU, EVERY 3 WEEKS
     Route: 048
  4. DICLOFENAC [Concomitant]
     Dosage: 150 MG, AS NEEDED
  5. TIARTAN [Concomitant]
     Dosage: 600 MG/12.5 MG

REACTIONS (1)
  - Uterine leiomyoma [Not Recovered/Not Resolved]
